FAERS Safety Report 11918888 (Version 2)
Quarter: 2016Q3

REPORT INFORMATION
  Report Type: Spontaneous
  Country: US (occurrence: US)
  Receive Date: 20160115
  Receipt Date: 20160804
  Transmission Date: 20161109
  Serious: Yes (Other)
  Sender: FDA-Public Use
  Company Number: US-JNJFOC-20151204895

PATIENT
  Sex: Female
  Weight: 86.18 kg

DRUGS (14)
  1. CIPROFLOXACIN. [Suspect]
     Active Substance: CIPROFLOXACIN
     Indication: SEASONAL ALLERGY
     Dosage: DURATION 5 DAYS
     Route: 065
     Dates: start: 20080707, end: 200807
  2. LEVAQUIN [Suspect]
     Active Substance: LEVOFLOXACIN
     Indication: SEASONAL ALLERGY
     Dosage: DURATION 5 DAYS
     Route: 048
     Dates: start: 20040414, end: 200404
  3. CIPROFLOXACIN. [Suspect]
     Active Substance: CIPROFLOXACIN
     Indication: SEASONAL ALLERGY
     Dosage: DURATION 5 DAYS
     Route: 065
     Dates: start: 20040503, end: 200405
  4. VIGAMOX [Suspect]
     Active Substance: MOXIFLOXACIN HYDROCHLORIDE
     Indication: PRODUCT USED FOR UNKNOWN INDICATION
     Route: 065
     Dates: start: 20061121
  5. LEVAQUIN [Suspect]
     Active Substance: LEVOFLOXACIN
     Indication: SEASONAL ALLERGY
     Dosage: DUURATION 20 DAYS
     Route: 048
     Dates: start: 20080228, end: 200803
  6. LEVAQUIN [Suspect]
     Active Substance: LEVOFLOXACIN
     Indication: SEASONAL ALLERGY
     Dosage: DURATION 10 DAYS
     Route: 048
     Dates: start: 20060412, end: 200604
  7. LEVAQUIN [Suspect]
     Active Substance: LEVOFLOXACIN
     Indication: SEASONAL ALLERGY
     Dosage: DURATION 5 DAYS
     Route: 048
     Dates: start: 20050311, end: 200503
  8. LEVAQUIN [Suspect]
     Active Substance: LEVOFLOXACIN
     Indication: SEASONAL ALLERGY
     Dosage: DURATION 15 DAYS
     Route: 048
     Dates: start: 20070827, end: 200709
  9. VIGAMOX [Suspect]
     Active Substance: MOXIFLOXACIN HYDROCHLORIDE
     Indication: PRODUCT USED FOR UNKNOWN INDICATION
     Dosage: DURATION 5 DAYS
     Route: 065
     Dates: start: 20070925
  10. LEVAQUIN [Suspect]
     Active Substance: LEVOFLOXACIN
     Indication: SEASONAL ALLERGY
     Dosage: DURATION 10 DAYS
     Route: 048
     Dates: start: 20060321, end: 2006
  11. LEVAQUIN [Suspect]
     Active Substance: LEVOFLOXACIN
     Indication: SEASONAL ALLERGY
     Dosage: DURATION 7 DAYS
     Route: 048
     Dates: start: 20040210, end: 200402
  12. LEVAQUIN [Suspect]
     Active Substance: LEVOFLOXACIN
     Indication: SEASONAL ALLERGY
     Route: 048
     Dates: start: 200709
  13. CIPROFLOXACIN. [Suspect]
     Active Substance: CIPROFLOXACIN
     Indication: SEASONAL ALLERGY
     Dosage: DURATION 5 DAYS
     Route: 065
     Dates: start: 20120925
  14. VIGAMOX [Suspect]
     Active Substance: MOXIFLOXACIN HYDROCHLORIDE
     Indication: PRODUCT USED FOR UNKNOWN INDICATION
     Route: 065
     Dates: start: 20061117

REACTIONS (2)
  - Neuropathy peripheral [Not Recovered/Not Resolved]
  - Fall [Unknown]

NARRATIVE: CASE EVENT DATE: 2007
